FAERS Safety Report 9413355 (Version 2)
Quarter: 2013Q3

REPORT INFORMATION
  Report Type: Report from Study
  Country: AU (occurrence: AU)
  Receive Date: 20130722
  Receipt Date: 20130805
  Transmission Date: 20140515
  Serious: Yes (Hospitalization)
  Sender: FDA-Public Use
  Company Number: AU-JNJFOC-20130709518

PATIENT
  Age: 58 Year
  Sex: Male

DRUGS (1)
  1. STELARA [Suspect]
     Indication: PSORIASIS
     Route: 058
     Dates: start: 20130517

REACTIONS (4)
  - Varicella [Not Recovered/Not Resolved]
  - Pneumonitis [Unknown]
  - Oxygen saturation decreased [Unknown]
  - Pulmonary fibrosis [Unknown]
